FAERS Safety Report 22304004 (Version 1)
Quarter: 2023Q2

REPORT INFORMATION
  Report Type: Spontaneous
  Country: FR (occurrence: FR)
  Receive Date: 20230510
  Receipt Date: 20230510
  Transmission Date: 20230722
  Serious: Yes (Death)
  Sender: FDA-Public Use
  Company Number: None

PATIENT

DRUGS (1)
  1. BUPRENORPHINE [Suspect]
     Active Substance: BUPRENORPHINE
     Indication: Product used for unknown indication
     Dosage: UNK
     Route: 065

REACTIONS (1)
  - Death [Fatal]

NARRATIVE: CASE EVENT DATE: 20210926
